FAERS Safety Report 5725266-7 (Version None)
Quarter: 2008Q2

REPORT INFORMATION
  Report Type: 
  Country: None (occurrence: None)
  Receive Date: 20080429
  Receipt Date: 20080418
  Transmission Date: 20081010
  Serious: Yes (Hospitalization)
  Sender: FDA-Public Use
  Company Number: GXKR2008PL03795

PATIENT
  Age: 64 Year
  Sex: Male
  Weight: 95 kg

DRUGS (2)
  1. AMOKSIKLAV (NGX) (AMOXICILLIN, CLAVULANATE) TABLET, 625MG [Suspect]
     Indication: LARYNGITIS
     Dosage: 625 MG, BID, ORAL
     Route: 048
     Dates: start: 20080103, end: 20080110
  2. ACETYLCYSTEINE [Concomitant]

REACTIONS (2)
  - DYSPNOEA [None]
  - RASH MACULO-PAPULAR [None]
